FAERS Safety Report 8572595-8 (Version None)
Quarter: 2012Q2

REPORT INFORMATION
  Report Type: 
  Country: None (occurrence: None)
  Receive Date: 20120423
  Receipt Date: 20091127
  Transmission Date: 20120825
  Serious: Yes (Other)
  Sender: FDA-Public Use
  Company Number: PHEH2009US10742

PATIENT
  Age: 20 Year
  Sex: Female
  Weight: 66.5 kg

DRUGS (13)
  1. PERCOCET [Concomitant]
  2. VITAMIN D [Interacting]
  3. BACLOFEN [Concomitant]
  4. ZOFRAN [Concomitant]
  5. MIRALAX [Concomitant]
  6. VALIUM [Concomitant]
  7. TOPAMAX [Concomitant]
  8. HYDROXYUREA [Concomitant]
  9. PREVACID [Concomitant]
  10. DEFERASIROX [Suspect]
     Indication: SICKLE CELL ANAEMIA
     Dosage: 1500 MG, QD, BUCCAL ; ORAL
     Route: 002
     Dates: start: 20081031, end: 20090825
  11. DEFERASIROX [Suspect]
     Indication: IRON OVERLOAD
     Dosage: 1500 MG, QD, BUCCAL ; ORAL
     Route: 002
     Dates: start: 20081031, end: 20090825
  12. ASPIRIN [Concomitant]
  13. PROZAC [Concomitant]

REACTIONS (3)
  - ASPARTATE AMINOTRANSFERASE INCREASED [None]
  - ALANINE AMINOTRANSFERASE INCREASED [None]
  - HEPATIC ENZYME INCREASED [None]
